FAERS Safety Report 18281040 (Version 1)
Quarter: 2020Q3

REPORT INFORMATION
  Report Type: Report from Study
  Country: US (occurrence: US)
  Receive Date: 20200918
  Receipt Date: 20200918
  Transmission Date: 20201103
  Serious: Yes (Hospitalization)
  Sender: FDA-Public Use
  Company Number: US-BAXTER-2020BAX018950

PATIENT
  Age: 75 Year
  Sex: Male

DRUGS (13)
  1. CYCLOPHOSPHAMIDE FOR INJECTION, USP [Suspect]
     Active Substance: CYCLOPHOSPHAMIDE
     Indication: PRODUCT USED FOR UNKNOWN INDICATION
     Dosage: REGIMEN A, CYCLIC (OVER 3 HOURS TWICE A DAY ON DAYS 1?3)
     Route: 042
  2. MESNEX [Suspect]
     Active Substance: MESNA
     Indication: PRODUCT USED FOR UNKNOWN INDICATION
     Dosage: REGIMEN A: CYCLIC (DAILY OVER 24 HOURS FOR 3 DAYS ON DAYS 1?3)
     Route: 042
  3. INOTUZUMAB OZOGAMICIN [Suspect]
     Active Substance: INOTUZUMAB OZOGAMICIN
     Indication: ACUTE LYMPHOCYTIC LEUKAEMIA
     Dosage: REGIMEN A: CYCLIC (OVER 1 HOUR ON DAYS 2 AND 8 OF CYCLES 1 AND 3)
     Route: 042
     Dates: start: 20200507
  4. PEGFILGRASTIM [Suspect]
     Active Substance: PEGFILGRASTIM
     Indication: PRODUCT USED FOR UNKNOWN INDICATION
     Dosage: REGIMEN A:CYCLIC, ON DAY 4 UNTIL RECOVERY OF GRANULOCYTE COUNT
     Route: 058
  5. INOTUZUMAB OZOGAMICIN [Suspect]
     Active Substance: INOTUZUMAB OZOGAMICIN
     Dosage: REGIMEN B: CYCLIC (ON DAYS 2 AND 8 OF CYCLES 2 AND 4)
     Route: 042
  6. RITUXIMAB. [Suspect]
     Active Substance: RITUXIMAB
     Dosage: REGIMEN B: ON DAY 2 AND 8 OF CYCLES 2 AND 4.
     Route: 042
  7. METHOTREXATE SODIUM. [Suspect]
     Active Substance: METHOTREXATE SODIUM
     Indication: PRODUCT USED FOR UNKNOWN INDICATION
     Dosage: REGIMEN B: CYCLIC(OVER 2HRS ON DAY 1)
     Route: 042
  8. PEGFILGRASTIM [Suspect]
     Active Substance: PEGFILGRASTIM
     Dosage: REGIMEN B: CYCLIC, ON DAY 4 UNTIL RECOVERY OF GRANULOCYTE COUNT,
     Route: 058
  9. DEXAMETHASONE. [Suspect]
     Active Substance: DEXAMETHASONE
     Indication: PRODUCT USED FOR UNKNOWN INDICATION
     Dosage: REGIMEN A: DAILY FOR 4 DAYS ON DAYS 1?4 AND 11?14
     Route: 042
  10. VINCRISTINE SULFATE. [Suspect]
     Active Substance: VINCRISTINE SULFATE
     Indication: PRODUCT USED FOR UNKNOWN INDICATION
     Dosage: REGIMEN A:CYCLIC (DAY 1 AND DAY 8)
     Route: 042
  11. METHOTREXATE SODIUM. [Suspect]
     Active Substance: METHOTREXATE SODIUM
     Dosage: REGIMEN B: CYCLIC (CONTINUOUS INFUSION OVER 22 HOURS ON DAY 1)
     Route: 042
  12. RITUXIMAB. [Suspect]
     Active Substance: RITUXIMAB
     Indication: PRODUCT USED FOR UNKNOWN INDICATION
     Dosage: REGIMEN A:, (ON DAY 2 AND DAY 8 OF CYCLES 1 AND 3)
     Route: 042
  13. ARA?C [Suspect]
     Active Substance: CYTARABINE
     Indication: PRODUCT USED FOR UNKNOWN INDICATION
     Dosage: REGIMEN B: 0.5 G/M2  OVER 3 HOURS TWICE A DAY X 4 DOSES ON DAYS 2 AND 3; 072945
     Route: 042

REACTIONS (1)
  - Nervous system disorder [Recovered/Resolved]

NARRATIVE: CASE EVENT DATE: 20200727
